FAERS Safety Report 5489655-0 (Version None)
Quarter: 2007Q4

REPORT INFORMATION
  Report Type: 
  Country: None (occurrence: None)
  Receive Date: 20071018
  Receipt Date: 20070920
  Transmission Date: 20080405
  Serious: Yes (Death, Hospitalization)
  Sender: FDA-Public Use
  Company Number: B0487712A

PATIENT
  Age: 83 Year
  Sex: Female
  Weight: 37 kg

DRUGS (12)
  1. AMOXICILLIN [Suspect]
     Dosage: 1.5G PER DAY
     Route: 048
     Dates: start: 20070813, end: 20070817
  2. AUGMENTIN '125' [Suspect]
     Dosage: 3TAB PER DAY
     Route: 048
     Dates: start: 20070817, end: 20070821
  3. COLCHICINE [Suspect]
     Dosage: 1MG PER DAY
     Route: 065
     Dates: start: 20070803, end: 20070817
  4. EFFEXOR [Suspect]
     Indication: DEPRESSION
     Dosage: 50MG THREE TIMES PER DAY
     Route: 048
     Dates: start: 20070614, end: 20070820
  5. DIGOXIN [Suspect]
     Dosage: .5TAB PER DAY
     Route: 048
     Dates: end: 20070817
  6. LASIX [Suspect]
     Dosage: 80MG PER DAY
     Route: 048
     Dates: end: 20070821
  7. AMLOR [Concomitant]
     Dosage: 5MG PER DAY
     Route: 065
  8. KALEORID [Concomitant]
     Dosage: 600MG TWO TIMES PER WEEK
     Route: 065
  9. KARDEGIC [Concomitant]
     Dosage: 75MG PER DAY
     Route: 065
  10. XANAX [Concomitant]
     Dosage: 1G PER DAY
     Route: 065
  11. LAROXYL [Concomitant]
     Dosage: 16DROP PER DAY
     Route: 048
  12. RISPERDAL [Concomitant]
     Route: 065
     Dates: end: 20070803

REACTIONS (7)
  - ACCIDENTAL OVERDOSE [None]
  - ASTHENIA [None]
  - DYSPNOEA [None]
  - HEPATOCELLULAR DAMAGE [None]
  - HYPERKALAEMIA [None]
  - LUNG DISORDER [None]
  - RENAL FAILURE ACUTE [None]
